FAERS Safety Report 8882016 (Version 1)
Quarter: 2012Q4

REPORT INFORMATION
  Report Type: 
  Country: US (occurrence: US)
  Receive Date: 20121105
  Receipt Date: 20121105
  Transmission Date: 20130627
  Serious: Yes (Other)
  Sender: FDA-Public Use
  Company Number: US-JNJFOC-20121016965

PATIENT
  Sex: Female

DRUGS (3)
  1. ELMIRON [Suspect]
     Indication: MATERNAL DRUGS AFFECTING FOETUS
     Route: 064
     Dates: start: 1997
  2. ELMIRON [Suspect]
     Indication: MATERNAL DRUGS AFFECTING FOETUS
     Route: 064
     Dates: start: 1989, end: 1997
  3. UNKNOWN MEDICATION [Concomitant]
     Route: 065

REACTIONS (3)
  - Leukaemia [Recovered/Resolved]
  - Asthma [Not Recovered/Not Resolved]
  - Seasonal allergy [Not Recovered/Not Resolved]
